FAERS Safety Report 7632627-8 (Version None)
Quarter: 2011Q3

REPORT INFORMATION
  Report Type: 
  Country: None (occurrence: None)
  Receive Date: 20110725
  Receipt Date: 20101103
  Transmission Date: 20111222
  Serious: No
  Sender: FDA-Public Use
  Company Number: US-BRISTOL-MYERS SQUIBB COMPANY-15366040

PATIENT
  Age: 88 Year
  Sex: Female

DRUGS (4)
  1. DIGOXIN [Concomitant]
  2. COUMADIN [Suspect]
  3. FUROSEMIDE [Concomitant]
  4. RAMIPRIL [Concomitant]

REACTIONS (1)
  - PRURITUS [None]
